FAERS Safety Report 6135369-3 (Version None)
Quarter: 2009Q1

REPORT INFORMATION
  Report Type: 
  Country: None (occurrence: None)
  Receive Date: 20090327
  Receipt Date: 20090318
  Transmission Date: 20090719
  Serious: Yes (Death, Hospitalization)
  Sender: FDA-Public Use
  Company Number: IT-PFIZER INC-2009184256

PATIENT

DRUGS (1)
  1. SUNITINIB MALATE [Suspect]
     Indication: FIBROMA
     Dosage: TDD 25 MG
     Dates: start: 20081027, end: 20090227

REACTIONS (2)
  - LUNG INFECTION [None]
  - PULMONARY EMBOLISM [None]
